FAERS Safety Report 13396240 (Version 1)
Quarter: 2017Q2

REPORT INFORMATION
  Report Type: Other
  Country: DE (occurrence: DE)
  Receive Date: 20170403
  Receipt Date: 20170403
  Transmission Date: 20170830
  Serious: Yes (Other)
  Sender: FDA-Public Use
  Company Number: DE-LUPIN PHARMACEUTICALS INC.-2017-00515

PATIENT
  Age: 43 Year
  Sex: Female

DRUGS (10)
  1. AGYRAX [Concomitant]
     Active Substance: MECLIZINE HYDROCHLORIDE
     Indication: NAUSEA
     Dosage: 25 MG,QD,
     Route: 048
  2. FOLIO [Concomitant]
     Active Substance: FOLIC ACID
     Indication: PROPHYLAXIS OF NEURAL TUBE DEFECT
     Dosage: .4 MG,QD,
     Route: 048
  3. LEVODOPA [Concomitant]
     Active Substance: LEVODOPA
     Indication: RESTLESS LEGS SYNDROME
     Dosage: 25 MG,QD,
     Route: 048
  4. NAUSEMA [Concomitant]
     Indication: NAUSEA
     Dosage: UNK UNK,UNK,UNKNOWN
     Route: 048
  5. FERRLECIT 62.5 MG [Concomitant]
     Indication: IRON DEFICIENCY
     Dosage: 18 INJECTIONS IN TOTAL
     Route: 048
  6. OMEPRAZOL [Concomitant]
     Active Substance: OMEPRAZOLE
     Indication: DYSPEPSIA
     Dosage: UNK UNK,QD,UNKNOWN
     Route: 048
  7. ATOSIL TROPFEN [Concomitant]
     Indication: SLEEP DISORDER
     Dosage: UNK UNK,UNK,UNKNOWN
     Route: 048
     Dates: start: 20160111, end: 20160111
  8. RIOPAN [Concomitant]
     Active Substance: MAGALDRATE
     Indication: DYSPEPSIA
     Dosage: 4 OR 5 TIMES ONLY
     Route: 048
  9. RENNIE [Concomitant]
     Active Substance: MAGNESIUM CARBONATE
     Indication: DYSPEPSIA
     Dosage: UNK UNK,UNK,UNKNOWN
     Route: 048
  10. SERTRALINE [Suspect]
     Active Substance: SERTRALINE HYDROCHLORIDE
     Indication: DEPRESSION
     Dosage: 100 MG,QD,
     Route: 048

REACTIONS (3)
  - Vomiting in pregnancy [Unknown]
  - Exposure during pregnancy [Unknown]
  - Gestational diabetes [Unknown]
